FAERS Safety Report 8142696-7 (Version None)
Quarter: 2012Q1

REPORT INFORMATION
  Report Type: 
  Country: None (occurrence: None)
  Receive Date: 20120216
  Receipt Date: 20120209
  Transmission Date: 20120608
  Serious: Yes (Other)
  Sender: FDA-Public Use
  Company Number: BR-PFIZER INC-2012036034

PATIENT
  Age: 64 Year
  Sex: Male

DRUGS (5)
  1. GALVUS MET [Suspect]
     Indication: DIABETES MELLITUS
     Dosage: TWO TABLETS DAILY
     Dates: start: 20111101
  2. SOTALOL HYDROCHLORIDE [Concomitant]
     Indication: CARDIAC DISORDER
     Dosage: ONE HALF TABLET DAILY
     Dates: start: 20020101
  3. LOSARTAN [Concomitant]
     Indication: HYPERTENSION
     Dosage: TWO TABLETS
  4. DOXAZOSIN MESYLATE [Suspect]
     Dosage: UNK
  5. XALATAN [Suspect]
     Indication: GLAUCOMA
     Dosage: 3 UG (ONE DROP IN EACH EYE), UNSPECIFIED FREQUENCY
     Route: 047
     Dates: start: 20111001

REACTIONS (4)
  - PROSTATIC DISORDER [None]
  - INTRAOCULAR PRESSURE TEST ABNORMAL [None]
  - INTRAOCULAR PRESSURE INCREASED [None]
  - DIABETES MELLITUS [None]
